FAERS Safety Report 12540235 (Version 2)
Quarter: 2016Q4

REPORT INFORMATION
  Report Type: Spontaneous
  Country: US (occurrence: US)
  Receive Date: 20160708
  Receipt Date: 20161007
  Transmission Date: 20170207
  Serious: Yes (Other)
  Sender: FDA-Public Use
  Company Number: PHHY2016US091571

PATIENT
  Age: 51 Year
  Sex: Male

DRUGS (1)
  1. LBH589 [Suspect]
     Active Substance: PANOBINOSTAT
     Indication: METASTATIC MALIGNANT MELANOMA
     Dosage: 40 MG, UNK (TWO CYCLES)
     Route: 065
     Dates: start: 201110, end: 201201

REACTIONS (3)
  - Malignant neoplasm progression [Unknown]
  - Lymphadenopathy [Unknown]
  - Metastatic malignant melanoma [Unknown]

NARRATIVE: CASE EVENT DATE: 201201
